FAERS Safety Report 5709616-3 (Version None)
Quarter: 2008Q2

REPORT INFORMATION
  Report Type: 
  Country: None (occurrence: None)
  Receive Date: 20080418
  Receipt Date: 20080416
  Transmission Date: 20081010
  Serious: Yes (Disabling, Other)
  Sender: FDA-Public Use
  Company Number: B0506746A

PATIENT
  Age: 60 Year
  Sex: Female

DRUGS (7)
  1. ARIXTRA [Suspect]
     Indication: PROPHYLAXIS
     Dosage: 2.5MG PER DAY
     Route: 058
     Dates: start: 20080124
  2. UNKNOWN DRUG [Concomitant]
     Dosage: 750MG TWICE PER DAY
  3. METROGYL [Concomitant]
     Route: 042
  4. UNKNOWN MEDICATION [Concomitant]
     Route: 042
  5. UNKNOWN MEDICATION [Concomitant]
     Dosage: 40MG PER DAY
  6. ULTRACET [Concomitant]
  7. UNKNOWN MEDICATION [Concomitant]

REACTIONS (2)
  - CEREBRAL INFARCTION [None]
  - MONOPLEGIA [None]
